FAERS Safety Report 5085470-0 (Version None)
Quarter: 2006Q3

REPORT INFORMATION
  Report Type: 
  Country: None (occurrence: None)
  Receive Date: 20060731
  Receipt Date: 20060515
  Transmission Date: 20061208
  Serious: Yes (Other)
  Sender: FDA-Public Use
  Company Number: 200610583BWH

PATIENT
  Age: 47 Year
  Sex: Male
  Weight: 103.4201 kg

DRUGS (5)
  1. AVELOX [Suspect]
     Indication: CHRONIC SINUSITIS
     Dosage: 400 MG, QD, ORAL
     Route: 048
     Dates: start: 20051229, end: 20060107
  2. ALLEGRA [Concomitant]
  3. PROVENTIL [Concomitant]
  4. ADVAIR DISKUS 100/50 [Concomitant]
  5. DYNEX [Concomitant]

REACTIONS (1)
  - HEPATITIS TOXIC [None]
